FAERS Safety Report 4527008-X (Version None)
Quarter: 2004Q4

REPORT INFORMATION
  Report Type: 
  Country: None (occurrence: None)
  Receive Date: 20041214
  Receipt Date: 20041015
  Transmission Date: 20050328
  Serious: Yes (Hospitalization)
  Sender: FDA-Public Use
  Company Number: DE-MERCK-0410DEU00508

PATIENT
  Age: 73 Year
  Sex: Female
  Weight: 60 kg

DRUGS (19)
  1. VIOXX [Suspect]
     Indication: BONE PAIN
     Route: 048
     Dates: start: 20000101
  2. VIOXX [Suspect]
     Route: 048
     Dates: end: 20040101
  3. VIOXX [Suspect]
     Route: 048
     Dates: start: 20020916
  4. VIOXX [Suspect]
     Route: 048
     Dates: start: 20011126, end: 20010101
  5. VIOXX [Suspect]
     Route: 048
     Dates: start: 20040513, end: 20040101
  6. VIOXX [Suspect]
     Indication: PAIN IN EXTREMITY
     Route: 048
     Dates: start: 20000101
  7. VIOXX [Suspect]
     Route: 048
     Dates: end: 20040101
  8. VIOXX [Suspect]
     Route: 048
     Dates: start: 20020916
  9. VIOXX [Suspect]
     Route: 048
     Dates: start: 20011126, end: 20010101
  10. VIOXX [Suspect]
     Route: 048
     Dates: start: 20040513, end: 20040101
  11. PHENPROCOUMON [Concomitant]
     Route: 065
     Dates: start: 19950101
  12. BUPRENORPHINE HYDROCHLORIDE [Concomitant]
     Route: 061
     Dates: start: 20020916, end: 20020918
  13. PANTOPRAZOLE SODIUM [Concomitant]
     Route: 065
     Dates: start: 20020916, end: 20020918
  14. METOPROLOL SUCCINATE [Concomitant]
     Route: 065
  15. LETROZOLE [Concomitant]
     Route: 065
  16. ALLOPURINOL [Concomitant]
     Route: 065
  17. CELECOXIB [Concomitant]
     Route: 065
     Dates: start: 20020401
  18. ACETAMINOPHEN [Concomitant]
     Route: 065
     Dates: start: 20010201
  19. ACETAMINOPHEN [Concomitant]
     Route: 065
     Dates: start: 20031101

REACTIONS (12)
  - CARPAL TUNNEL SYNDROME [None]
  - CHRONIC SINUSITIS [None]
  - DIVERTICULAR PERFORATION [None]
  - DIVERTICULITIS [None]
  - EPIGASTRIC DISCOMFORT [None]
  - FIBROMYALGIA [None]
  - HEADACHE [None]
  - NAUSEA [None]
  - POLYNEUROPATHY [None]
  - SOFT TISSUE DISORDER [None]
  - SPINAL DISORDER [None]
  - VOMITING [None]
